FAERS Safety Report 14339262 (Version 1)
Quarter: 2017Q4

REPORT INFORMATION
  Report Type: Spontaneous
  Country: FR (occurrence: FR)
  Receive Date: 20171230
  Receipt Date: 20171230
  Transmission Date: 20180321
  Serious: Yes (Hospitalization)
  Sender: FDA-Public Use
  Company Number: FR-AUROBINDO-AUR-APL-2017-47783

PATIENT
  Age: 58 Year
  Sex: Male

DRUGS (1)
  1. FENOFIBRATE. [Suspect]
     Active Substance: FENOFIBRATE
     Indication: DYSLIPIDAEMIA
     Dosage: UNK
     Route: 065
     Dates: start: 2010, end: 201707

REACTIONS (1)
  - Pulmonary embolism [Recovering/Resolving]

NARRATIVE: CASE EVENT DATE: 20171106
